FAERS Safety Report 21874885 (Version 2)
Quarter: 2023Q1

REPORT INFORMATION
  Report Type: Spontaneous
  Country: US (occurrence: None)
  Receive Date: 20230117
  Receipt Date: 20230324
  Transmission Date: 20230417
  Serious: No
  Sender: FDA-Public Use
  Company Number: 2023A008884

PATIENT
  Age: 569 Month
  Sex: Female
  Weight: 78.9 kg

DRUGS (1)
  1. FASENRA [Suspect]
     Active Substance: BENRALIZUMAB
     Indication: Bronchospasm
     Dosage: 30 MG EVERY 6 WEEKS
     Route: 058
     Dates: start: 20211209

REACTIONS (4)
  - Injection site pain [Unknown]
  - Drug dose omission by device [Not Recovered/Not Resolved]
  - Off label use [Unknown]
  - Device leakage [Unknown]

NARRATIVE: CASE EVENT DATE: 20211201
